FAERS Safety Report 7942199-6 (Version None)
Quarter: 2011Q4

REPORT INFORMATION
  Report Type: 
  Country: None (occurrence: None)
  Receive Date: 20111128
  Receipt Date: 20111121
  Transmission Date: 20120403
  Serious: Yes (Hospitalization)
  Sender: FDA-Public Use
  Company Number: FR-ELI_LILLY_AND_COMPANY-FR201111006162

PATIENT
  Sex: Male

DRUGS (4)
  1. ELOXATIN [Concomitant]
     Dosage: 185 MG, UNKNOWN
  2. IBUPROFEN [Concomitant]
  3. METHYLPREDNISOLONE [Concomitant]
     Dosage: 60 MG, UNKNOWN
     Route: 042
  4. ALIMTA [Suspect]
     Indication: NON-SMALL CELL LUNG CANCER
     Dosage: 925 MG, PER CYCLE
     Route: 042
     Dates: start: 20110906, end: 20110906

REACTIONS (3)
  - ACUTE GENERALISED EXANTHEMATOUS PUSTULOSIS [None]
  - HEPATOCELLULAR INJURY [None]
  - PANCYTOPENIA [None]
